FAERS Safety Report 24365506 (Version 1)
Quarter: 2024Q3

REPORT INFORMATION
  Report Type: Spontaneous
  Country: US (occurrence: None)
  Receive Date: 20240926
  Receipt Date: 20240926
  Transmission Date: 20241017
  Serious: No
  Sender: BANNER
  Company Number: US-PTA-005761

PATIENT
  Age: 78 Year
  Sex: Male

DRUGS (1)
  1. NAPROXEN [Suspect]
     Active Substance: NAPROXEN
     Indication: Pain
     Route: 048
     Dates: start: 202307

REACTIONS (1)
  - Skin discolouration [Recovering/Resolving]

NARRATIVE: CASE EVENT DATE: 20230801
